FAERS Safety Report 6735074-6 (Version None)
Quarter: 2010Q2

REPORT INFORMATION
  Report Type: 
  Country: None (occurrence: None)
  Receive Date: 20100521
  Receipt Date: 20100511
  Transmission Date: 20101027
  Serious: Yes (Hospitalization, Other)
  Sender: FDA-Public Use
  Company Number: JP-JNJFOC-20090607486

PATIENT
  Sex: Female
  Weight: 49 kg

DRUGS (12)
  1. DOXORUBICIN HCL [Suspect]
     Indication: OVARIAN CANCER RECURRENT
     Dosage: 70 MG TOTAL - CYCLE 1
     Route: 042
  2. DOXORUBICIN HCL [Suspect]
     Dosage: CYCLE 5
     Route: 042
  3. DOXORUBICIN HCL [Suspect]
     Dosage: CYCLE 2
     Route: 042
  4. DOXORUBICIN HCL [Suspect]
     Dosage: CYCLE 3
     Route: 042
  5. DOXORUBICIN HCL [Suspect]
     Dosage: CYCLE 4
     Route: 042
  6. DOXORUBICIN HCL [Suspect]
     Dosage: CYCLE 5
     Route: 042
  7. JUZEN-TAIHO-TO [Concomitant]
     Indication: PROPHYLAXIS
     Route: 048
  8. AZUNOL [Concomitant]
     Indication: STOMATITIS
     Route: 002
  9. KENALOG [Concomitant]
     Indication: STOMATITIS
     Route: 049
  10. RINDERON-VG [Concomitant]
     Indication: PALMAR-PLANTAR ERYTHRODYSAESTHESIA SYNDROME
     Route: 061
  11. FLAVITAN [Concomitant]
     Indication: STOMATITIS
     Route: 048
  12. PYDOXAL [Concomitant]
     Indication: STOMATITIS
     Route: 048

REACTIONS (4)
  - FEBRILE NEUTROPENIA [None]
  - PLATELET COUNT DECREASED [None]
  - PYELONEPHRITIS [None]
  - STAPHYLOCOCCAL INFECTION [None]
